FAERS Safety Report 23797096 (Version 3)
Quarter: 2024Q2

REPORT INFORMATION
  Report Type: Spontaneous
  Country: US (occurrence: US)
  Receive Date: 20240430
  Receipt Date: 20240627
  Transmission Date: 20240716
  Serious: No
  Sender: FDA-Public Use
  Company Number: US-BoehringerIngelheim-2024-BI-024788

PATIENT
  Sex: Male

DRUGS (2)
  1. SPIRIVA RESPIMAT [Suspect]
     Active Substance: TIOTROPIUM BROMIDE
     Indication: Chronic obstructive pulmonary disease
     Dosage: SPRAY
     Route: 055
     Dates: start: 202402
  2. ELIPTA [Concomitant]
     Indication: Product used for unknown indication

REACTIONS (1)
  - Drug ineffective [Unknown]
